FAERS Safety Report 4986720-9 (Version None)
Quarter: 2006Q2

REPORT INFORMATION
  Report Type: 
  Country: None (occurrence: None)
  Receive Date: 20060428
  Receipt Date: 20050928
  Transmission Date: 20061013
  Serious: Yes (Hospitalization, Other)
  Sender: FDA-Public Use
  Company Number: US-MERCK-0509USA04427

PATIENT
  Sex: Female
  Weight: 118 kg

DRUGS (7)
  1. VIOXX [Suspect]
     Indication: ARTHRITIS
     Route: 048
     Dates: start: 20011001, end: 20030724
  2. BEXTRA [Concomitant]
     Route: 065
  3. CELEBREX [Concomitant]
     Route: 065
  4. ZOLOFT [Concomitant]
     Route: 065
  5. LESCOL [Concomitant]
     Route: 065
  6. SYNTHROID [Concomitant]
     Route: 065
  7. TRIMOX [Concomitant]
     Route: 065

REACTIONS (11)
  - ARTHROPATHY [None]
  - ATRIAL FIBRILLATION [None]
  - CEREBROVASCULAR ACCIDENT [None]
  - DEEP VEIN THROMBOSIS [None]
  - FALL [None]
  - HYPERTENSION [None]
  - MYOCARDIAL INFARCTION [None]
  - SINUS BRADYCARDIA [None]
  - STAPHYLOCOCCAL INFECTION [None]
  - THROMBOSIS [None]
  - VENTRICULAR HYPERTROPHY [None]
